FAERS Safety Report 10149895 (Version 3)
Quarter: 2014Q2

REPORT INFORMATION
  Report Type: Spontaneous
  Country: US (occurrence: US)
  Receive Date: 20140502
  Receipt Date: 20140520
  Transmission Date: 20141212
  Serious: Yes (Other)
  Sender: FDA-Public Use
  Company Number: US-ELI_LILLY_AND_COMPANY-US201404008129

PATIENT
  Sex: Male

DRUGS (16)
  1. HUMALOG 50% LISPRO, 50% NPL [Suspect]
     Indication: DIABETES MELLITUS
     Dosage: 88 U, EACH MORNING
     Route: 065
     Dates: start: 201204
  2. HUMALOG 50% LISPRO, 50% NPL [Suspect]
     Dosage: 77 U, EACH EVENING
     Route: 065
     Dates: start: 201204
  3. HUMALOG 50% LISPRO, 50% NPL [Suspect]
     Dosage: 88 U, EACH MORNING
     Route: 065
  4. HUMALOG 50% LISPRO, 50% NPL [Suspect]
     Dosage: 77 U, EACH EVENING
     Route: 065
  5. DIGOXIN [Concomitant]
  6. METFORMIN [Concomitant]
  7. HYDROCHLOROTHIAZIDE [Concomitant]
  8. LISINOPRIL [Concomitant]
  9. METOPROLOL [Concomitant]
  10. WARFARIN [Concomitant]
     Indication: CARDIAC VALVE DISEASE
  11. ASPIRIN [Concomitant]
  12. VITAMINS                           /90003601/ [Concomitant]
  13. GLIMEPIRIDE [Concomitant]
  14. DILTIAZEM XR [Concomitant]
     Dosage: 120 MG, UNKNOWN
  15. VITAMIN B [Concomitant]
  16. VITAMIN D                          /00107901/ [Concomitant]

REACTIONS (3)
  - Macular degeneration [Not Recovered/Not Resolved]
  - Headache [Unknown]
  - Incorrect dose administered [Unknown]
